FAERS Safety Report 5604601-4 (Version None)
Quarter: 2008Q1

REPORT INFORMATION
  Report Type: 
  Country: None (occurrence: None)
  Receive Date: 20080124
  Receipt Date: 20080124
  Transmission Date: 20080703
  Serious: Yes (Hospitalization)
  Sender: FDA-Public Use
  Company Number: None

PATIENT
  Age: 79 Year
  Sex: Male
  Weight: 64.5 kg

DRUGS (1)
  1. WARFARIN SODIUM [Suspect]
     Dosage: 6MG EVERY DAY PO
     Route: 048
     Dates: start: 20061204, end: 20080118

REACTIONS (3)
  - FALL [None]
  - HAEMATOMA [None]
  - INTERNATIONAL NORMALISED RATIO INCREASED [None]
